FAERS Safety Report 8119003 (Version 2)
Quarter: 2012Q4

REPORT INFORMATION
  Report Type: 
  Country: CA (occurrence: CA)
  Receive Date: 20110902
  Receipt Date: 20121015
  Transmission Date: 20130627
  Serious: Yes (Other)
  Sender: FDA-Public Use
  Company Number: PHHY2011CA76981

PATIENT
  Sex: Female

DRUGS (3)
  1. ACLASTA [Suspect]
     Indication: OSTEOPOROSIS
     Route: 042
     Dates: start: 20091005
  2. ACLASTA [Suspect]
     Route: 042
     Dates: start: 20101013
  3. ACLASTA [Suspect]
     Route: 042
     Dates: start: 20111028

REACTIONS (4)
  - Dementia Alzheimer^s type [Unknown]
  - Vein disorder [Unknown]
  - Contusion [Unknown]
  - Asthenia [Unknown]
